FAERS Safety Report 5043116-1 (Version None)
Quarter: 2006Q2

REPORT INFORMATION
  Report Type: 
  Country: None (occurrence: None)
  Receive Date: 20060628
  Receipt Date: 20060616
  Transmission Date: 20061013
  Serious: Yes (Other)
  Sender: FDA-Public Use
  Company Number: 200612550GDS

PATIENT
  Age: 25 Year
  Sex: Female
  Weight: 50 kg

DRUGS (1)
  1. CANESTEN (CLOTRIMAZOLE) (CLOTRIMAZOLE) [Suspect]
     Indication: VAGINAL INFECTION
     Dosage: VAGINAL
     Route: 067
     Dates: start: 20060521, end: 20060525

REACTIONS (2)
  - DRUG EXPOSURE DURING PREGNANCY [None]
  - FOETAL GROWTH RETARDATION [None]
